FAERS Safety Report 5304218-5 (Version None)
Quarter: 2007Q2

REPORT INFORMATION
  Report Type: 
  Country: None (occurrence: None)
  Receive Date: 20070423
  Receipt Date: 20070413
  Transmission Date: 20071010
  Serious: Yes (Other)
  Sender: FDA-Public Use
  Company Number: PHEH2007US05413

PATIENT
  Age: 55 Year
  Sex: Female

DRUGS (1)
  1. ZELNORM [Suspect]
     Indication: IRRITABLE BOWEL SYNDROME
     Dosage: 6 MG, BID

REACTIONS (4)
  - BACK DISORDER [None]
  - CARDIAC FLUTTER [None]
  - CONDITION AGGRAVATED [None]
  - SYSTEMIC LUPUS ERYTHEMATOSUS [None]
